FAERS Safety Report 5101311-7 (Version None)
Quarter: 2006Q3

REPORT INFORMATION
  Report Type: 
  Country: None (occurrence: None)
  Receive Date: 20060906
  Receipt Date: 20060828
  Transmission Date: 20061208
  Serious: Yes (Hospitalization)
  Sender: FDA-Public Use
  Company Number: 2005BI019063

PATIENT
  Age: 34 Year
  Sex: Female

DRUGS (1)
  1. AVONEX [Suspect]
     Indication: MULTIPLE SCLEROSIS
     Dosage: 30 UG; QW; IM
     Route: 030
     Dates: start: 20040410

REACTIONS (6)
  - BLOOD CREATININE INCREASED [None]
  - BLOOD IMMUNOGLOBULIN A ABNORMAL [None]
  - HAEMATURIA [None]
  - NEPHROPATHY [None]
  - PROTEINURIA [None]
  - WHITE BLOOD CELLS URINE POSITIVE [None]
